FAERS Safety Report 15313579 (Version 2)
Quarter: 2019Q2

REPORT INFORMATION
  Report Type: Spontaneous
  Country: IT (occurrence: IT)
  Receive Date: 20180824
  Receipt Date: 20190410
  Transmission Date: 20190711
  Serious: Yes (Life-Threatening, Other)
  Sender: FDA-Public Use
  Company Number: IT-CONCORDIA PHARMACEUTICALS INC.-GSH201808-003017

PATIENT
  Age: 14 Year
  Sex: Female

DRUGS (1)
  1. PLAQUENIL [Suspect]
     Active Substance: HYDROXYCHLOROQUINE SULFATE
     Indication: DRUG ABUSE
     Route: 048
     Dates: start: 20180102, end: 20180102

REACTIONS (8)
  - Hypotension [Recovering/Resolving]
  - Vertigo [Recovering/Resolving]
  - Eyelid ptosis [Recovering/Resolving]
  - Chalazion [Recovering/Resolving]
  - Pupils unequal [Recovering/Resolving]
  - Vomiting [Recovering/Resolving]
  - Electrocardiogram QT prolonged [Recovering/Resolving]
  - Swelling [Recovering/Resolving]

NARRATIVE: CASE EVENT DATE: 20180102
